FAERS Safety Report 12605911 (Version 2)
Quarter: 2016Q3

REPORT INFORMATION
  Report Type: Report from Study
  Country: US (occurrence: US)
  Receive Date: 20160729
  Receipt Date: 20160817
  Transmission Date: 20161109
  Serious: Yes (Death, Other)
  Sender: FDA-Public Use
  Company Number: US-AMGEN-USASL2016095249

PATIENT
  Age: 61 Year
  Sex: Female
  Weight: 61 kg

DRUGS (3)
  1. ZORVOLEX [Concomitant]
     Active Substance: DICLOFENAC
     Dosage: UNK
  2. PROLIA [Suspect]
     Active Substance: DENOSUMAB
     Indication: OSTEOPOROSIS POSTMENOPAUSAL
     Dosage: UNK
     Route: 065
  3. PROZAC [Concomitant]
     Active Substance: FLUOXETINE HYDROCHLORIDE
     Dosage: UNK

REACTIONS (9)
  - Infection [Unknown]
  - Bone pain [Unknown]
  - Mobility decreased [Unknown]
  - Death [Fatal]
  - Pain [Unknown]
  - Nausea [Unknown]
  - Asthenia [Unknown]
  - Anal incontinence [Unknown]
  - Malaise [Unknown]

NARRATIVE: CASE EVENT DATE: 20160615
